FAERS Safety Report 17003932 (Version 1)
Quarter: 2019Q4

REPORT INFORMATION
  Report Type: Spontaneous
  Country: US (occurrence: US)
  Receive Date: 20191107
  Receipt Date: 20191107
  Transmission Date: 20200122
  Serious: Yes (Other)
  Sender: FDA-Public Use
  Company Number: US-PROCTER_AND_GAMBLE-GS19117057

PATIENT
  Age: 63 Year
  Sex: Female

DRUGS (1)
  1. CREST 3D WHITE BRILLIANCE BLAST [Suspect]
     Active Substance: SODIUM FLUORIDE
     Dosage: SMALL AMOUNT, 2 /DAY
     Route: 002
     Dates: start: 201910

REACTIONS (2)
  - Tooth fracture [Not Recovered/Not Resolved]
  - Product physical consistency issue [Unknown]

NARRATIVE: CASE EVENT DATE: 201910
